FAERS Safety Report 13862282 (Version 1)
Quarter: 2017Q3

REPORT INFORMATION
  Report Type: Spontaneous
  Country: US (occurrence: US)
  Receive Date: 20170813
  Receipt Date: 20170813
  Transmission Date: 20171127
  Serious: Yes (Hospitalization, Other)
  Sender: FDA-Public Use
  Company Number: US-APOTEX-2017AP016690

PATIENT
  Age: 75 Year
  Sex: Female

DRUGS (1)
  1. FLECAINIDE ACETATE. [Suspect]
     Active Substance: FLECAINIDE ACETATE
     Indication: ATRIAL FIBRILLATION
     Route: 065

REACTIONS (4)
  - Resting tremor [Unknown]
  - Ventricular tachycardia [Unknown]
  - Confusional state [Unknown]
  - Toxicity to various agents [Unknown]
